FAERS Safety Report 18027040 (Version 1)
Quarter: 2020Q3

REPORT INFORMATION
  Report Type: Spontaneous
  Country: SE (occurrence: SE)
  Receive Date: 20200715
  Receipt Date: 20200715
  Transmission Date: 20201103
  Serious: Yes (Disabling)
  Sender: FDA-Public Use
  Company Number: NVSC2020SE193047

PATIENT
  Age: 28 Year
  Sex: Female
  Weight: 90 kg

DRUGS (2)
  1. ZADITEN [Suspect]
     Active Substance: KETOTIFEN FUMARATE
     Indication: SEASONAL ALLERGY
     Dosage: 2 DF, QD
     Route: 065
     Dates: start: 20200601
  2. CETRIZINE [Concomitant]
     Active Substance: CETIRIZINE HYDROCHLORIDE
     Indication: PRODUCT USED FOR UNKNOWN INDICATION
     Dosage: UNK
     Route: 065
     Dates: start: 20200501

REACTIONS (2)
  - Eye irritation [Recovering/Resolving]
  - Conjunctivitis [Recovering/Resolving]

NARRATIVE: CASE EVENT DATE: 20200601
